FAERS Safety Report 10047021 (Version 2)
Quarter: 2014Q2

REPORT INFORMATION
  Report Type: Spontaneous
  Country: GB (occurrence: None)
  Receive Date: 20140327
  Receipt Date: 20140410
  Transmission Date: 20141212
  Serious: Yes (Other)
  Sender: FDA-Public Use
  Company Number: AUR-APL-2014-03623

PATIENT
  Age: 55 Year
  Sex: Female

DRUGS (5)
  1. SUMATRIPTAN [Suspect]
     Indication: PRODUCT USED FOR UNKNOWN INDICATION
     Dosage: UNKNOWN
  2. LEVOTHYROXINE (LEVOTHYROXINE) [Concomitant]
  3. OMEPRAZOLE (OMEPRAZOLE) [Concomitant]
  4. PROPANOL (PROPANOL) [Concomitant]
  5. TEGRETOL RETARD (CARBAMAZEPINE) [Concomitant]

REACTIONS (1)
  - Acute coronary syndrome [None]
